FAERS Safety Report 6266844 (Version 3)
Quarter: 2012Q4

REPORT INFORMATION
  Report Type: 
  Country: US (occurrence: US)
  Receive Date: 20061208
  Receipt Date: 20120928
  Transmission Date: 20130627
  Serious: Yes (Death)
  Sender: FDA-Public Use
  Company Number: US-ASTRAZENECA-2005UW12036

PATIENT
  Age: 77 Year
  Sex: Female
  Weight: 76.7 kg

DRUGS (9)
  1. TOPROL XL [Suspect]
     Route: 048
  2. CRESTOR [Suspect]
     Indication: BLOOD CHOLESTEROL INCREASED
     Route: 048
  3. CRESTOR [Suspect]
     Indication: BLOOD CHOLESTEROL INCREASED
     Route: 048
  4. TENORMIN [Concomitant]
     Route: 048
  5. PLAVIX [Concomitant]
  6. NORVASC [Concomitant]
  7. COZAAR [Concomitant]
  8. ISOSORBIDE [Concomitant]
  9. WATER PILL [Concomitant]

REACTIONS (3)
  - Death [Fatal]
  - Increased tendency to bruise [Unknown]
  - Intentional drug misuse [Unknown]
